FAERS Safety Report 5333714-X (Version None)
Quarter: 2007Q2

REPORT INFORMATION
  Report Type: 
  Country: None (occurrence: None)
  Receive Date: 20070524
  Receipt Date: 20070518
  Transmission Date: 20071010
  Serious: Yes (Other)
  Sender: FDA-Public Use
  Company Number: B0471759A

PATIENT
  Age: 64 Year
  Sex: Female

DRUGS (1)
  1. CLAVULIN [Suspect]
     Indication: CYSTITIS
     Dosage: 2MG PER DAY
     Route: 048
     Dates: start: 20070415, end: 20070419

REACTIONS (2)
  - DYSPHAGIA [None]
  - MACROGLOSSIA [None]
